FAERS Safety Report 4831347-2 (Version None)
Quarter: 2005Q4

REPORT INFORMATION
  Report Type: 
  Country: None (occurrence: None)
  Receive Date: 20051118
  Receipt Date: 20051114
  Transmission Date: 20060501
  Serious: Yes (Death, Other)
  Sender: FDA-Public Use
  Company Number: 2005AP05902

PATIENT
  Age: 66 Year
  Sex: Male

DRUGS (1)
  1. SEROQUEL [Suspect]
     Indication: DELIRIUM
     Route: 048
     Dates: start: 20051101

REACTIONS (3)
  - COMA [None]
  - DEATH [None]
  - HYPOTENSION [None]
